FAERS Safety Report 20972974 (Version 2)
Quarter: 2022Q4

REPORT INFORMATION
  Report Type: Report from Study
  Country: CA (occurrence: CA)
  Receive Date: 20220617
  Receipt Date: 20221201
  Transmission Date: 20230113
  Serious: Yes (Other)
  Sender: FDA-Public Use
  Company Number: CA-JNJFOC-20220615506

PATIENT
  Age: 39 Year
  Sex: Female

DRUGS (5)
  1. SIMPONI [Suspect]
     Active Substance: GOLIMUMAB
     Indication: Ankylosing spondylitis
     Route: 058
     Dates: start: 20210529
  2. COVID-19 VACCINE [Concomitant]
     Indication: COVID-19 prophylaxis
     Route: 065
     Dates: start: 20210111
  3. COVID-19 VACCINE [Concomitant]
     Dates: start: 20210503
  4. COVID-19 VACCINE [Concomitant]
     Dates: start: 20210909
  5. COVID-19 VACCINE [Concomitant]
     Dates: start: 20220204

REACTIONS (6)
  - Oesophageal candidiasis [Recovering/Resolving]
  - Ankylosing spondylitis [Unknown]
  - Colitis microscopic [Recovering/Resolving]
  - SARS-CoV-2 test positive [Recovering/Resolving]
  - Influenza [Recovering/Resolving]
  - Therapeutic response decreased [Unknown]

NARRATIVE: CASE EVENT DATE: 20220101
